FAERS Safety Report 20775975 (Version 1)
Quarter: 2022Q2

REPORT INFORMATION
  Report Type: Spontaneous
  Country: CN (occurrence: CN)
  Receive Date: 20220502
  Receipt Date: 20220502
  Transmission Date: 20220721
  Serious: Yes (Other)
  Sender: FDA-Public Use
  Company Number: CN-PFIZER INC-202200617401

PATIENT
  Age: 84 Year
  Sex: Female

DRUGS (1)
  1. METHYLPREDNISOLONE SODIUM SUCCINATE [Suspect]
     Active Substance: METHYLPREDNISOLONE SODIUM SUCCINATE
     Indication: Chronic obstructive pulmonary disease
     Dosage: 40 MG, 1X/DAY
     Route: 041
     Dates: start: 20220331, end: 20220402

REACTIONS (2)
  - Abdominal discomfort [Recovering/Resolving]
  - Abdominal tenderness [Recovering/Resolving]

NARRATIVE: CASE EVENT DATE: 20220402
